FAERS Safety Report 8277170-0 (Version None)
Quarter: 2012Q2

REPORT INFORMATION
  Report Type: 
  Country: None (occurrence: None)
  Receive Date: 20120412
  Receipt Date: 20120411
  Transmission Date: 20120825
  Serious: No
  Sender: FDA-Public Use
  Company Number: US-TEVA-332812USA

PATIENT
  Sex: Male

DRUGS (7)
  1. FLUTICASONE PROPIONATE [Suspect]
     Indication: ASTHMA
  2. PROAIR HFA [Suspect]
     Indication: ASTHMA
  3. PROAIR HFA [Suspect]
     Indication: UPPER RESPIRATORY TRACT INFECTION
  4. FLUTICASONE PROPIONATE [Suspect]
     Indication: COUGH
     Dosage: 88 MICROGRAM;
     Route: 055
     Dates: start: 20111225
  5. FLUTICASONE PROPIONATE [Suspect]
     Indication: UPPER RESPIRATORY TRACT INFECTION
  6. AMOXICILLIN [Suspect]
     Indication: UPPER RESPIRATORY TRACT INFECTION
     Dosage: 1750 MILLIGRAM;
  7. PROAIR HFA [Suspect]
     Indication: COUGH
     Route: 055
     Dates: start: 20111225

REACTIONS (2)
  - COUGH [None]
  - WHEEZING [None]
